FAERS Safety Report 8052572-6 (Version None)
Quarter: 2012Q1

REPORT INFORMATION
  Report Type: 
  Country: None (occurrence: None)
  Receive Date: 20120111
  Receipt Date: 20110516
  Transmission Date: 20120608
  Serious: No
  Sender: FDA-Public Use
  Company Number: AECAN201100130

PATIENT
  Age: 46 Year
  Sex: Male

DRUGS (1)
  1. PLASBUMIN [Suspect]
     Indication: ASCITES
     Dosage: 6.75 GM;TOTAL;IV
     Route: 042
     Dates: start: 20110327, end: 20110328

REACTIONS (2)
  - BODY TEMPERATURE INCREASED [None]
  - HYPOTENSION [None]
